FAERS Safety Report 10257873 (Version 1)
Quarter: 2014Q2

REPORT INFORMATION
  Report Type: Spontaneous
  Country: US (occurrence: None)
  Receive Date: 20140623
  Receipt Date: 20140623
  Transmission Date: 20141212
  Serious: No
  Sender: FDA-Public Use
  Company Number: None

PATIENT
  Age: 47 Year
  Sex: Female

DRUGS (1)
  1. MYCOPHENOLATE [Suspect]
     Indication: HIV INFECTION CDC GROUP IV SUBGROUP A
     Dosage: 500MG  TWICE A DAY  BY MOUTH
     Route: 048
     Dates: start: 20140129

REACTIONS (3)
  - Cough [None]
  - Oropharyngeal pain [None]
  - Myalgia [None]
